FAERS Safety Report 5707882-1 (Version None)
Quarter: 2008Q2

REPORT INFORMATION
  Report Type: 
  Country: None (occurrence: None)
  Receive Date: 20080417
  Receipt Date: 20080417
  Transmission Date: 20081010
  Serious: Yes (Hospitalization)
  Sender: FDA-Public Use
  Company Number: None

PATIENT
  Sex: Female
  Weight: 49.8957 kg

DRUGS (1)
  1. HEPARIN [Suspect]
     Indication: THROMBOSIS PROPHYLAXIS
     Dosage: 5000 UNIT Q12H SQ
     Route: 058
     Dates: start: 20080201, end: 20080215

REACTIONS (3)
  - DEEP VEIN THROMBOSIS [None]
  - HEMIPARESIS [None]
  - PLATELET COUNT DECREASED [None]
